FAERS Safety Report 13516446 (Version 2)
Quarter: 2017Q3

REPORT INFORMATION
  Report Type: Spontaneous
  Country: US (occurrence: US)
  Receive Date: 20170505
  Receipt Date: 20170912
  Transmission Date: 20171127
  Serious: No
  Sender: FDA-Public Use
  Company Number: US-AMGEN-USASP2017065578

PATIENT
  Age: 22 Year
  Sex: Male

DRUGS (1)
  1. ENBREL [Suspect]
     Active Substance: ETANERCEPT
     Indication: PRODUCT USED FOR UNKNOWN INDICATION
     Dosage: UNK
     Route: 065
     Dates: start: 2017

REACTIONS (4)
  - Secretion discharge [Unknown]
  - Intentional product misuse [Unknown]
  - Drug dose omission [Unknown]
  - Cough [Unknown]

NARRATIVE: CASE EVENT DATE: 2017
